FAERS Safety Report 22148678 (Version 12)
Quarter: 2024Q4

REPORT INFORMATION
  Report Type: Report from Study
  Country: US (occurrence: US)
  Receive Date: 20230328
  Receipt Date: 20241203
  Transmission Date: 20250114
  Serious: Yes (Hospitalization, Disabling, Other)
  Sender: AMGEN
  Company Number: US-HORIZON THERAPEUTICS-HZN-2022-004258

PATIENT
  Age: 71 Year
  Sex: Female

DRUGS (54)
  1. TEPEZZA [Suspect]
     Active Substance: TEPROTUMUMAB-TRBW
     Indication: Endocrine ophthalmopathy
     Dosage: 677 MILLIGRAM, Q3WK (FIRST INFUSION)
     Route: 042
     Dates: start: 20220427
  2. TEPEZZA [Suspect]
     Active Substance: TEPROTUMUMAB-TRBW
     Indication: Graves^ disease
     Dosage: 1340 MILLIGRAM, Q3WK (SECOND INFUSION)
     Route: 042
     Dates: start: 20220518
  3. TEPEZZA [Suspect]
     Active Substance: TEPROTUMUMAB-TRBW
     Dosage: 1330 MILLIGRAM, Q3WK (THIRD INFUSION)
     Route: 042
     Dates: start: 20220608
  4. TEPEZZA [Suspect]
     Active Substance: TEPROTUMUMAB-TRBW
     Dosage: 1338 MILLIGRAM, Q3WK (FOURTH INFUSION)
     Route: 042
     Dates: start: 20220629
  5. TEPEZZA [Suspect]
     Active Substance: TEPROTUMUMAB-TRBW
     Dosage: 1334 MILLIGRAM, Q3WK (FIFTH INFUSION)
     Route: 042
     Dates: start: 20220727
  6. TEPEZZA [Suspect]
     Active Substance: TEPROTUMUMAB-TRBW
     Dosage: 1260 MILLIGRAM, Q3WK (SIXTH INFUSION)
     Route: 042
     Dates: start: 20220817
  7. TEPEZZA [Suspect]
     Active Substance: TEPROTUMUMAB-TRBW
     Dosage: 1340 MILLIGRAM, Q3WK (SEVENTH INFUSION)
     Route: 042
     Dates: start: 20220907
  8. TEPEZZA [Suspect]
     Active Substance: TEPROTUMUMAB-TRBW
     Dosage: 1322 MILLIGRAM, Q3WK (LAST INFUSION)
     Route: 042
     Dates: start: 20220928, end: 20220928
  9. COZAAR [Concomitant]
     Active Substance: LOSARTAN POTASSIUM
     Dosage: 25 MILLIGRAM
     Route: 048
     Dates: start: 20220211
  10. COZAAR [Concomitant]
     Active Substance: LOSARTAN POTASSIUM
     Dosage: 50 MILLIGRAM, QD
     Route: 048
  11. SYNTHROID [Concomitant]
     Active Substance: LEVOTHYROXINE SODIUM
     Dosage: 25 MICROGRAM, QD
     Route: 048
     Dates: start: 20210914
  12. TOPROL XL [Concomitant]
     Active Substance: METOPROLOL SUCCINATE
     Dosage: 50 MILLIGRAM, QD
     Route: 048
     Dates: start: 20211216
  13. TOPROL XL [Concomitant]
     Active Substance: METOPROLOL SUCCINATE
     Dosage: 25 MILLIGRAM, QD
     Route: 048
     Dates: start: 20220411
  14. ECOTRIN [Concomitant]
     Active Substance: ASPIRIN
     Dosage: 81 MILLIGRAM, QD
     Route: 048
     Dates: start: 20220411
  15. LIPITOR [Concomitant]
     Active Substance: ATORVASTATIN CALCIUM
     Dosage: 40 MILLIGRAM, QD  (EVERY MORNING)
     Route: 048
     Dates: start: 20220411
  16. FIORICET [Concomitant]
     Active Substance: ACETAMINOPHEN\BUTALBITAL\CAFFEINE
     Indication: Migraine
     Dosage: 50 MG-325 MG (TAKE 1 TO 2 TABLETS BY MOUTH EVERY 4 TO 6 HOURS)
     Route: 048
     Dates: start: 20220211
  17. FIORICET [Concomitant]
     Active Substance: ACETAMINOPHEN\BUTALBITAL\CAFFEINE
     Indication: Headache
     Dosage: UNK, (1 TABLET BY MOUTH EVERY 4 HOURS)
     Route: 048
  18. RESTASIS [Concomitant]
     Active Substance: CYCLOSPORINE
     Dosage: 0.05 PERCENT, BID
     Route: 047
     Dates: start: 20211026
  19. ASPIRIN [Concomitant]
     Active Substance: ASPIRIN
     Dosage: UNK
     Route: 065
  20. OMEPRAZOLE [Concomitant]
     Active Substance: OMEPRAZOLE
     Dosage: UNK, BID (TAKE 1 CAPSULE)
     Route: 048
     Dates: start: 20211102, end: 20221101
  21. ONDANSETRON [Concomitant]
     Active Substance: ONDANSETRON
     Indication: Nausea
     Dosage: UNK, TAKE 1 TABLET EVERY 8 HOURS
     Route: 048
     Dates: start: 20211213
  22. PRED FORTE [Concomitant]
     Active Substance: PREDNISOLONE ACETATE
     Dosage: 1 DROP, QID
     Route: 047
     Dates: start: 20210210
  23. MINERALS\VITAMINS [Concomitant]
     Active Substance: MINERALS\VITAMINS
     Dosage: UNK
     Route: 065
  24. RETAINE MGD [Concomitant]
     Active Substance: LIGHT MINERAL OIL\MINERAL OIL
     Dosage: (0.5%-0.5%) 1 DROP, QID
     Route: 047
     Dates: start: 20210831, end: 20220830
  25. REFRESH P.M. [Concomitant]
     Active Substance: MINERAL OIL\PETROLATUM
     Dosage: (57.3%- 42.5%) INSTILL 1/4 STRIP ONTO LOWER EYELID IN BOTH EYES AT BEDTIME
     Route: 065
     Dates: start: 20210901, end: 20220831
  26. SUCRALFATE [Concomitant]
     Active Substance: SUCRALFATE
     Dosage: UNK, QID, EMPTY STOMACH 1 HOUR BEFORE MEALS AND AT BEDTIME
     Route: 048
     Dates: start: 20211215
  27. MEDROL [Concomitant]
     Active Substance: METHYLPREDNISOLONE
     Dosage: UNK UNK, QD
     Route: 048
     Dates: start: 20220222, end: 20230221
  28. LIGHT MINERAL OIL [Concomitant]
     Active Substance: LIGHT MINERAL OIL
     Dosage: UNK, 0.5- 0.5 %
     Route: 065
  29. DETROL [Concomitant]
     Active Substance: TOLTERODINE TARTRATE
     Dosage: UNK UNK, QD
     Route: 065
     Dates: start: 20001229, end: 20230109
  30. SALINE [Concomitant]
     Active Substance: SODIUM CHLORIDE
     Dosage: UNK
     Route: 042
  31. METOPROLOL SUCCINATE [Concomitant]
     Active Substance: METOPROLOL SUCCINATE
     Dosage: 25 MILLIGRAM, QD (75 MG TOTAL/DAY)
     Route: 065
  32. METOPROLOL SUCCINATE [Concomitant]
     Active Substance: METOPROLOL SUCCINATE
     Dosage: 50 MILLIGRAM, QD (75 MG TOTAL/DAY)
     Route: 065
  33. BUTABARBITAL [Concomitant]
     Active Substance: BUTABARBITAL
     Dosage: 30 MILLIGRAM
     Route: 065
  34. SELENIUM [Concomitant]
     Active Substance: SELENIUM
     Indication: Thyroid disorder
     Dosage: 100 MICROGRAM, QD
     Route: 065
  35. SELENIUM [Concomitant]
     Active Substance: SELENIUM
     Dosage: 200 MICROGRAM
     Route: 065
  36. SELENIUM [Concomitant]
     Active Substance: SELENIUM
     Dosage: 250 MICROGRAM, QD
     Route: 065
  37. PREDNISOLONE ACETATE [Concomitant]
     Active Substance: PREDNISOLONE ACETATE
     Dosage: UNK UNK, QID
     Route: 047
     Dates: start: 20220210
  38. LOSARTAN [Concomitant]
     Active Substance: LOSARTAN
     Dosage: 25 MILLIGRAM, QD
     Route: 048
  39. LOSARTAN [Concomitant]
     Active Substance: LOSARTAN
     Dosage: 50 MILLIGRAM, QD (100 MILLIGRAM TOTAL/DAY)
     Route: 048
  40. DAVESOMERAN\ELASOMERAN [Concomitant]
     Active Substance: DAVESOMERAN\ELASOMERAN
     Dosage: UNK
     Route: 065
  41. ATORVASTATIN [Concomitant]
     Active Substance: ATORVASTATIN
     Dosage: 40 MILLIGRAM, QD
     Route: 048
  42. FLUTICASONE PROPIONATE [Concomitant]
     Active Substance: FLUTICASONE PROPIONATE
     Dosage: 50 MICROGRAM, QD
     Route: 045
  43. LEVOTHYROXINE [Concomitant]
     Active Substance: LEVOTHYROXINE
     Dosage: 25 MICROGRAM, QD, (X 14 PILLS WEEKLY (AVERAGING 50 MCG DAILY))
     Route: 048
  44. LEVOTHYROXINE [Concomitant]
     Active Substance: LEVOTHYROXINE
     Dosage: 25 MICROGRAM, QD (TAKE A TOTAL OF 10 PILLS/WEEK IN DIVIDED DOSES)
     Route: 048
  45. NITROSTAT [Concomitant]
     Active Substance: NITROGLYCERIN
     Dosage: 0.4 MILLIGRAM, (EVERY 5 MINUTE)
     Route: 060
  46. OFLOXACIN [Concomitant]
     Active Substance: OFLOXACIN
     Dosage: UNK, QID
     Route: 047
  47. PRILOSEC [Concomitant]
     Active Substance: OMEPRAZOLE MAGNESIUM
     Dosage: 40 MILLIGRAM, BID
     Route: 048
  48. ALENDRONATE [Concomitant]
     Active Substance: ALENDRONATE SODIUM
     Dosage: 35 MILLIGRAM
     Route: 065
  49. ASPIRIN [Concomitant]
     Active Substance: ASPIRIN
     Dosage: 81 MILLIGRAM, QD
     Route: 048
  50. METOPROLOL SUCCINATE [Concomitant]
     Active Substance: METOPROLOL SUCCINATE
     Dosage: UNK UNK, QD, (50 + 25 MILLIGRAM)
     Route: 065
  51. CALCIUM [Concomitant]
     Active Substance: CALCIUM
     Dosage: 500 MILLIGRAM, QD
     Route: 065
  52. FOSAMAX [Concomitant]
     Active Substance: ALENDRONATE SODIUM
     Dosage: 35 MILLIGRAM, QWK
     Route: 048
  53. REFRESH PLUS [Concomitant]
     Active Substance: CARBOXYMETHYLCELLULOSE SODIUM
     Dosage: UNK UNK, TID, (ONE DROP IN EACH EYE)
     Route: 047
  54. PAXLOVID [Concomitant]
     Active Substance: NIRMATRELVIR\RITONAVIR
     Dosage: UNK
     Route: 065

REACTIONS (38)
  - Deafness neurosensory [Not Recovered/Not Resolved]
  - Endocrine ophthalmopathy [Unknown]
  - Disability [Unknown]
  - Blindness unilateral [Unknown]
  - Blood pressure systolic increased [Unknown]
  - Decreased appetite [Unknown]
  - Inappropriate schedule of product administration [Unknown]
  - Injury [Unknown]
  - Nasopharyngitis [Unknown]
  - Seasonal allergy [Unknown]
  - Discomfort [Unknown]
  - Quality of life decreased [Unknown]
  - Anxiety [Not Recovered/Not Resolved]
  - Concomitant disease aggravated [Unknown]
  - Economic problem [Unknown]
  - Pain [Unknown]
  - Emotional distress [Unknown]
  - Arthralgia [Unknown]
  - Oropharyngeal pain [Unknown]
  - Muscle strain [Unknown]
  - Neck pain [Unknown]
  - Excessive cerumen production [Unknown]
  - Swelling of eyelid [Recovered/Resolved]
  - Blood alkaline phosphatase increased [Unknown]
  - Blood potassium decreased [Unknown]
  - Hypoaesthesia [Unknown]
  - Blood thyroid stimulating hormone increased [Unknown]
  - Pulse abnormal [Unknown]
  - Depressed mood [Unknown]
  - Irritability [Unknown]
  - Ear discomfort [Unknown]
  - COVID-19 [Unknown]
  - Weight decreased [Unknown]
  - Fatigue [Unknown]
  - Muscle spasms [Unknown]
  - Headache [Recovering/Resolving]
  - Tinnitus [Not Recovered/Not Resolved]
  - Drug ineffective [Unknown]

NARRATIVE: CASE EVENT DATE: 20220101
